FAERS Safety Report 9463523 (Version 1)
Quarter: 2013Q3

REPORT INFORMATION
  Report Type: Spontaneous
  Country: US (occurrence: US)
  Receive Date: 20130819
  Receipt Date: 20130819
  Transmission Date: 20140515
  Serious: No
  Sender: FDA-Public Use
  Company Number: US-009507513-1308USA006930

PATIENT
  Sex: Male

DRUGS (4)
  1. SINGULAIR [Suspect]
     Indication: ASTHMA
     Dosage: 10 MG, ONCE IN THE EVENING
     Route: 048
     Dates: start: 1998
  2. PEPCID [Concomitant]
     Dosage: UNK
  3. ATROVENT [Concomitant]
     Dosage: INHALER
  4. ALOMIDE [Concomitant]
     Dosage: UNK

REACTIONS (2)
  - Dysuria [Not Recovered/Not Resolved]
  - Urinary tract disorder [Not Recovered/Not Resolved]
